FAERS Safety Report 7428476-6 (Version None)
Quarter: 2011Q2

REPORT INFORMATION
  Report Type: 
  Country: None (occurrence: None)
  Receive Date: 20110421
  Receipt Date: 20110405
  Transmission Date: 20111010
  Serious: Yes (Hospitalization)
  Sender: FDA-Public Use
  Company Number: NL-SANOFI-AVENTIS-2011SA007033

PATIENT
  Age: 82 Year
  Sex: Female

DRUGS (1)
  1. MINIRIN [Suspect]
     Indication: NOCTURIA
     Dosage: ONCE DAILY FOR THE NIGHT
     Route: 048

REACTIONS (5)
  - VOMITING [None]
  - SOMNOLENCE [None]
  - HYPONATRAEMIA [None]
  - INAPPROPRIATE ANTIDIURETIC HORMONE SECRETION [None]
  - NAUSEA [None]
